FAERS Safety Report 23737592 (Version 1)
Quarter: 2024Q2

REPORT INFORMATION
  Report Type: Spontaneous
  Country: US (occurrence: US)
  Receive Date: 20240412
  Receipt Date: 20240412
  Transmission Date: 20240716
  Serious: Yes (Other)
  Sender: FDA-Public Use
  Company Number: US-BEH-2024170704

PATIENT
  Age: 24 Year
  Sex: Male

DRUGS (12)
  1. IDELVION [Suspect]
     Active Substance: COAGULATION FACTOR IX RECOMBINANT HUMAN
     Indication: Factor IX deficiency
     Dosage: 6053 IU, QOW
     Route: 042
     Dates: start: 201610
  2. IDELVION [Suspect]
     Active Substance: COAGULATION FACTOR IX RECOMBINANT HUMAN
     Indication: Factor IX deficiency
     Dosage: 6053 IU, QOW
     Route: 042
     Dates: start: 201610
  3. IDELVION [Suspect]
     Active Substance: COAGULATION FACTOR IX RECOMBINANT HUMAN
     Indication: Traumatic haemorrhage
     Dosage: 6053 IU, PRN
     Route: 042
     Dates: start: 201610
  4. IDELVION [Suspect]
     Active Substance: COAGULATION FACTOR IX RECOMBINANT HUMAN
     Indication: Traumatic haemorrhage
     Dosage: 6053 IU, PRN
     Route: 042
     Dates: start: 201610
  5. IDELVION [Suspect]
     Active Substance: COAGULATION FACTOR IX RECOMBINANT HUMAN
     Dosage: 2 DF, PRN
     Route: 065
     Dates: start: 20240318
  6. IDELVION [Suspect]
     Active Substance: COAGULATION FACTOR IX RECOMBINANT HUMAN
     Dosage: 2 DF, PRN
     Route: 065
     Dates: start: 20240318
  7. IDELVION [Suspect]
     Active Substance: COAGULATION FACTOR IX RECOMBINANT HUMAN
     Dosage: 9K
     Route: 065
     Dates: start: 20240318
  8. IDELVION [Suspect]
     Active Substance: COAGULATION FACTOR IX RECOMBINANT HUMAN
     Dosage: 9K
     Route: 065
     Dates: start: 20240318
  9. IDELVION [Suspect]
     Active Substance: COAGULATION FACTOR IX RECOMBINANT HUMAN
     Indication: Factor IX deficiency
     Dosage: 6053 IU, QOW
     Route: 042
     Dates: start: 201610
  10. IDELVION [Suspect]
     Active Substance: COAGULATION FACTOR IX RECOMBINANT HUMAN
     Indication: Factor IX deficiency
     Dosage: 6053 IU, QOW
     Route: 042
     Dates: start: 201610
  11. IDELVION [Suspect]
     Active Substance: COAGULATION FACTOR IX RECOMBINANT HUMAN
     Dosage: 6053 IU, PRN
     Route: 042
     Dates: start: 201610
  12. IDELVION [Suspect]
     Active Substance: COAGULATION FACTOR IX RECOMBINANT HUMAN
     Dosage: 6053 IU, PRN
     Route: 042
     Dates: start: 201610

REACTIONS (5)
  - Drug ineffective [Unknown]
  - Hand fracture [Unknown]
  - Traumatic haemorrhage [Not Recovered/Not Resolved]
  - Intentional product use issue [Unknown]
  - Therapy change [Unknown]

NARRATIVE: CASE EVENT DATE: 20240301
